FAERS Safety Report 17190850 (Version 1)
Quarter: 2019Q4

REPORT INFORMATION
  Report Type: Spontaneous
  Country: CA (occurrence: CA)
  Receive Date: 20191223
  Receipt Date: 20191223
  Transmission Date: 20200122
  Serious: Yes (Other)
  Sender: FDA-Public Use
  Company Number: CA-PFIZER INC-2019550511

PATIENT
  Age: 86 Year
  Sex: Female
  Weight: 76 kg

DRUGS (1)
  1. PHENYTOIN SODIUM. [Suspect]
     Active Substance: PHENYTOIN SODIUM
     Indication: SEIZURE
     Dosage: 1000 MG, SINGLE
     Route: 042

REACTIONS (2)
  - Hypotension [Recovered/Resolved]
  - Hyporesponsive to stimuli [Recovered/Resolved]
